FAERS Safety Report 8548637-2 (Version None)
Quarter: 2012Q3

REPORT INFORMATION
  Report Type: 
  Country: None (occurrence: None)
  Receive Date: 20120730
  Receipt Date: 20120720
  Transmission Date: 20120928
  Serious: Yes (Other)
  Sender: FDA-Public Use
  Company Number: US-BAYER-2012-050151

PATIENT
  Age: 43 Year
  Sex: Female
  Weight: 86.168 kg

DRUGS (12)
  1. BENADRYL [Concomitant]
     Dosage: UNK
     Dates: start: 20050101
  2. YASMIN [Suspect]
     Indication: CONTRACEPTION
     Dosage: UNK
     Dates: start: 20010101, end: 20040101
  3. ADDERALL 5 [Concomitant]
     Dosage: UNK
     Dates: start: 20090101
  4. PHENTERMINE [Concomitant]
     Dosage: 37.5 MG,1 TABLET DAILY
     Route: 048
  5. ANTIBIOTICS [Concomitant]
  6. YAZ [Suspect]
     Indication: PREMENSTRUAL SYNDROME
     Dosage: UNK
     Dates: start: 20040101
  7. PROMETHAZINE [Concomitant]
     Dosage: 25 MG, EVERY 6 HOURS,PRN
     Route: 048
  8. PREVACID [Concomitant]
     Dosage: 30 MG, 1 CAPSULE DAILY
     Route: 048
  9. YAZ [Suspect]
     Indication: CONTRACEPTION
     Dosage: UNK
     Dates: start: 20030101
  10. KLONOPIN [Concomitant]
     Dosage: UNK
     Dates: start: 20060101
  11. WELLBUTRIN [Concomitant]
     Dosage: UNK
     Dates: start: 20090101
  12. YASMIN [Suspect]
     Indication: PREMENSTRUAL SYNDROME
     Dosage: UNK
     Dates: start: 20010101, end: 20030101

REACTIONS (8)
  - PAIN [None]
  - INJURY [None]
  - GALLBLADDER DISORDER [None]
  - ANHEDONIA [None]
  - GENERAL PHYSICAL HEALTH DETERIORATION [None]
  - EMOTIONAL DISTRESS [None]
  - ANXIETY [None]
  - CHOLECYSTITIS CHRONIC [None]
